FAERS Safety Report 9455839 (Version 1)
Quarter: 2013Q3

REPORT INFORMATION
  Report Type: Spontaneous
  Country: DE (occurrence: DE)
  Receive Date: 20130813
  Receipt Date: 20130813
  Transmission Date: 20140515
  Serious: Yes (Hospitalization, Other)
  Sender: FDA-Public Use
  Company Number: DE-JNJFOC-20130803266

PATIENT
  Age: 78 Year
  Sex: Male
  Weight: 58 kg

DRUGS (3)
  1. ZYTIGA [Suspect]
     Indication: PROSTATE CANCER METASTATIC
     Dosage: IN THE MORNING
     Route: 048
     Dates: start: 20130428
  2. PREDNISOLONE [Suspect]
     Indication: PROSTATE CANCER METASTATIC
     Dosage: 1-0-1
     Route: 065
     Dates: start: 20130428
  3. ZOMETA [Concomitant]
     Route: 042

REACTIONS (1)
  - Cerebrovascular accident [Recovered/Resolved]
